FAERS Safety Report 8069959-8 (Version None)
Quarter: 2012Q1

REPORT INFORMATION
  Report Type: 
  Country: None (occurrence: None)
  Receive Date: 20120125
  Receipt Date: 20120117
  Transmission Date: 20120608
  Serious: Yes (Hospitalization, Other)
  Sender: FDA-Public Use
  Company Number: JP-ASTELLAS-2012JP000061

PATIENT
  Age: 46 Year
  Sex: Male
  Weight: 71 kg

DRUGS (3)
  1. ENBREL [Suspect]
     Dosage: UNK
     Route: 058
  2. PROGRAF [Suspect]
     Indication: RHEUMATOID ARTHRITIS
     Dosage: 1 MG, BID
     Route: 048
     Dates: start: 20090701, end: 20110801
  3. ENBREL [Suspect]
     Indication: RHEUMATOID ARTHRITIS
     Dosage: 50 MG, WEEKLY
     Route: 058
     Dates: start: 20080301, end: 20110830

REACTIONS (2)
  - INFECTIOUS PLEURAL EFFUSION [None]
  - RHEUMATOID ARTHRITIS [None]
